FAERS Safety Report 25886641 (Version 1)
Quarter: 2025Q4

REPORT INFORMATION
  Report Type: Spontaneous
  Country: US (occurrence: US)
  Receive Date: 20251006
  Receipt Date: 20251006
  Transmission Date: 20260117
  Serious: No
  Sender: QUAGEN PHARMACEUTICALS
  Company Number: US-QUAGEN-2025QUASPO00656

PATIENT
  Age: 56 Year
  Sex: Female

DRUGS (1)
  1. CLOBETASOL PROPIONATE [Suspect]
     Active Substance: CLOBETASOL PROPIONATE
     Indication: Eczema
     Dosage: 2-3 MONTHS
     Route: 061

REACTIONS (5)
  - Erythema [Unknown]
  - Spider vein [Unknown]
  - Burning sensation [Unknown]
  - Product administered at inappropriate site [Unknown]
  - Product use issue [Unknown]
